FAERS Safety Report 5805224-4 (Version None)
Quarter: 2008Q3

REPORT INFORMATION
  Report Type: 
  Country: None (occurrence: None)
  Receive Date: 20080707
  Receipt Date: 20080522
  Transmission Date: 20090109
  Serious: Yes (Other)
  Sender: FDA-Public Use
  Company Number: 2008AL005761

PATIENT
  Age: 89 Year
  Sex: Female

DRUGS (4)
  1. DIGOXIN [Suspect]
     Indication: ATRIAL FIBRILLATION
     Dosage: 0.125MG DAILY PO
     Route: 048
     Dates: start: 20071208, end: 20080101
  2. ASPIRIN [Concomitant]
  3. DIURETIC NOS [Concomitant]
  4. HYPERTENSION NOS [Concomitant]

REACTIONS (7)
  - AMNESIA [None]
  - COUGH [None]
  - FATIGUE [None]
  - GAIT DISTURBANCE [None]
  - HOT FLUSH [None]
  - MALAISE [None]
  - POOR QUALITY SLEEP [None]
